FAERS Safety Report 19719151 (Version 2)
Quarter: 2022Q1

REPORT INFORMATION
  Report Type: Other
  Country: None (occurrence: US)
  Receive Date: 20210818
  Receipt Date: 20220325
  Transmission Date: 20220423
  Serious: Yes (Disabling)
  Sender: FDA-Public Use
  Company Number: US-NOSTRUM LABORATORIES, INC.-2115250

PATIENT
  Sex: Male

DRUGS (1)
  1. RANITIDINE [Suspect]
     Active Substance: RANITIDINE
     Indication: Product used for unknown indication
     Route: 048

REACTIONS (1)
  - Oesophageal carcinoma [Unknown]
